FAERS Safety Report 9874232 (Version 2)
Quarter: 2014Q1

REPORT INFORMATION
  Report Type: Other
  Country: US (occurrence: US)
  Receive Date: 20140206
  Receipt Date: 20140206
  Transmission Date: 20141002
  Serious: No
  Sender: FDA-Public Use
  Company Number: US-ACORDA-ACO_32392_2012

PATIENT
  Sex: Female

DRUGS (6)
  1. AMPYRA [Suspect]
     Indication: MULTIPLE SCLEROSIS
     Dosage: 10 MG, Q 12 HRS
     Route: 048
     Dates: start: 20120928, end: 20121003
  2. SIMVASTATIN [Concomitant]
     Indication: HYPERLIPIDAEMIA
     Dosage: 20 MG, QD
     Route: 048
  3. REBIF [Concomitant]
     Indication: MULTIPLE SCLEROSIS
     Dosage: 44 MCG/.5 ML
     Route: 058
  4. METOPROLOL [Concomitant]
     Indication: BLOOD PRESSURE
     Dosage: 25 MG, UNK
     Route: 048
  5. SPIRONOLACTONE [Concomitant]
     Indication: OEDEMA
     Dosage: 25 MG, PRN
     Route: 048
  6. LORAZEPAM [Concomitant]
     Indication: ANXIETY
     Dosage: 1 G, PRN 6-8 HOURS
     Route: 048

REACTIONS (7)
  - Panic attack [Unknown]
  - Chest discomfort [Unknown]
  - Muscular weakness [Unknown]
  - Hyperhidrosis [Unknown]
  - Insomnia [Recovered/Resolved]
  - Headache [Unknown]
  - Constipation [Unknown]
